FAERS Safety Report 9709467 (Version 2)
Quarter: 2013Q4

REPORT INFORMATION
  Report Type: Spontaneous
  Country: US (occurrence: US)
  Receive Date: 20131126
  Receipt Date: 20131127
  Transmission Date: 20140711
  Serious: Yes (Death)
  Sender: FDA-Public Use
  Company Number: US-ROCHE-1306839

PATIENT
  Age: 39 Year
  Sex: Female

DRUGS (2)
  1. PEGASYS [Suspect]
     Indication: THROMBOCYTOPENIA
     Route: 065
  2. COPEGUS [Suspect]
     Indication: THROMBOCYTOPENIA
     Route: 065

REACTIONS (2)
  - Death [Fatal]
  - Off label use [Unknown]
